FAERS Safety Report 10155523 (Version 3)
Quarter: 2016Q1

REPORT INFORMATION
  Report Type: Spontaneous
  Country: US (occurrence: US)
  Receive Date: 20140506
  Receipt Date: 20160115
  Transmission Date: 20160525
  Serious: No
  Sender: FDA-Public Use
  Company Number: US-PFIZER INC-2014121549

PATIENT
  Age: 55 Year
  Sex: Female

DRUGS (19)
  1. LYRICA [Suspect]
     Active Substance: PREGABALIN
     Indication: NEUROPATHY PERIPHERAL
  2. ALPRAZOLAM. [Concomitant]
     Active Substance: ALPRAZOLAM
     Indication: ANXIETY
     Dosage: 0.5 MG, UNK (ONE TABLET THREE TO FOUR TIMES A DAY)
     Route: 048
     Dates: start: 20160107
  3. ERYTHROMYCIN. [Concomitant]
     Active Substance: ERYTHROMYCIN
     Indication: EYE DISORDER
     Dosage: UNK (1 CM RIBBON), 3X/DAY
     Route: 047
     Dates: start: 20140819
  4. HYDROCODONE BITARTRATE AND ACETAMINOPHEN [Concomitant]
     Active Substance: ACETAMINOPHEN\HYDROCODONE BITARTRATE
     Indication: PAIN
     Dosage: 1 DF (HYDROCODONE 7.5 MG/PARACETAMOL 325 MG)  4X/DAY (EVERY 6 HOURS)
     Route: 048
     Dates: start: 20160107
  5. FENOFIBRATE. [Concomitant]
     Active Substance: FENOFIBRATE
     Indication: BLOOD TRIGLYCERIDES INCREASED
     Dosage: 160 MG, 1X/DAY (AT SUPPERTIME)
     Route: 048
     Dates: start: 20160105
  6. METHADONE [Concomitant]
     Active Substance: METHADONE HYDROCHLORIDE
     Indication: PAIN
     Dosage: 10 MG, 3X/DAY (EVERY 8 HOURS)
     Route: 048
     Dates: start: 20160107
  7. PROAIR HFA [Concomitant]
     Active Substance: ALBUTEROL SULFATE
     Dosage: 90 UG, EVERY 4 HOURS AS NEEDED
     Route: 055
     Dates: start: 20130125, end: 20130128
  8. ONDANSETRON [Concomitant]
     Active Substance: ONDANSETRON
     Indication: NAUSEA
     Dosage: 4 MG, 1 TABLET EVERY 4-6 HOUR OR 2 TABLETS EVERY 8 HOURS)
     Route: 048
     Dates: start: 20141120
  9. ONDANSETRON [Concomitant]
     Active Substance: ONDANSETRON
     Indication: VOMITING
  10. VALACYCLOVIR HYDROCHLORIDE. [Concomitant]
     Active Substance: VALACYCLOVIR HYDROCHLORIDE
     Dosage: UNK
     Dates: start: 20150630
  11. ALENDRONATE SODIUM. [Concomitant]
     Active Substance: ALENDRONATE SODIUM
     Dosage: 70 MG, WEEKLY (ONE TABLET  IN THE MORNING ONE DAY PER WEEK)
     Dates: start: 20140811
  12. MIRTAZAPINE. [Concomitant]
     Active Substance: MIRTAZAPINE
     Indication: DEPRESSION
  13. ZOLPIDEM [Concomitant]
     Active Substance: ZOLPIDEM\ZOLPIDEM TARTRATE
     Indication: SLEEP DISORDER
     Dosage: 10 MG, AS NEEDED (EVERY NIGHT AT BEDTIME)
     Route: 048
     Dates: start: 20151216
  14. CLOBETASOL [Concomitant]
     Active Substance: CLOBETASOL
     Indication: RASH
     Dosage: UNK UNK, 2X/DAY
     Route: 061
     Dates: start: 20130314
  15. GAVILYTE N [Concomitant]
     Dosage: UNK
     Dates: start: 20140121
  16. LYRICA [Suspect]
     Active Substance: PREGABALIN
     Indication: FIBROMYALGIA
     Dosage: 150 MG, 3X/DAY
     Route: 048
  17. TRIAMCINOLONE ACETONIDE. [Concomitant]
     Active Substance: TRIAMCINOLONE ACETONIDE
     Dosage: UNK UNK, 2X/DAY
     Route: 061
     Dates: start: 20141118
  18. BELSOMRA [Concomitant]
     Active Substance: SUVOREXANT
     Indication: INSOMNIA
     Dosage: 10 MG, 1X/DAY (AT BEDTIME)
     Route: 048
     Dates: start: 20150618
  19. MIRTAZAPINE. [Concomitant]
     Active Substance: MIRTAZAPINE
     Indication: INSOMNIA
     Dosage: 15 MG, 1/DAY  (1/2 OR 1 TABLET AT SUPPERTIME)
     Route: 048
     Dates: start: 20150618

REACTIONS (2)
  - Upper respiratory tract infection [Unknown]
  - Drug dispensing error [Unknown]
